FAERS Safety Report 5283778-7 (Version None)
Quarter: 2007Q1

REPORT INFORMATION
  Report Type: 
  Country: None (occurrence: None)
  Receive Date: 20061226
  Receipt Date: 20060320
  Transmission Date: 20070707
  Serious: Yes (Other)
  Sender: FDA-Public Use
  Company Number: 2006S1000059

PATIENT
  Age: 40 Year
  Sex: Male

DRUGS (1)
  1. ACITRETIN [Suspect]
     Indication: ERYTHROKERATODERMIA VARIABILIS
     Dosage: PO
     Route: 048
     Dates: start: 19930101

REACTIONS (1)
  - EXOSTOSIS [None]
